FAERS Safety Report 6280154-5 (Version None)
Quarter: 2009Q3

REPORT INFORMATION
  Report Type: 
  Country: None (occurrence: None)
  Receive Date: 20090723
  Receipt Date: 20090714
  Transmission Date: 20100115
  Serious: Yes (Hospitalization)
  Sender: FDA-Public Use
  Company Number: PHHY2009DE29658

PATIENT
  Sex: Female

DRUGS (1)
  1. ACLASTA [Suspect]
     Dosage: 100 ML
     Route: 042

REACTIONS (5)
  - CARDIOVASCULAR DISORDER [None]
  - DECREASED APPETITE [None]
  - DIZZINESS [None]
  - FALL [None]
  - GENERAL PHYSICAL HEALTH DETERIORATION [None]
